FAERS Safety Report 12183629 (Version 1)
Quarter: 2016Q1

REPORT INFORMATION
  Report Type: Spontaneous
  Country: US (occurrence: None)
  Receive Date: 20160315
  Receipt Date: 20160315
  Transmission Date: 20160526
  Serious: No
  Sender: FDA-Public Use
  Company Number: None

PATIENT
  Age: 55 Year
  Sex: Female

DRUGS (10)
  1. AFINITOR [Suspect]
     Active Substance: EVEROLIMUS
     Indication: BREAST CANCER
     Route: 048
     Dates: start: 20160304
  2. DULOXETINE. [Concomitant]
     Active Substance: DULOXETINE
  3. TRIAMT/HCTZ [Concomitant]
     Active Substance: HYDROCHLOROTHIAZIDE\TRIAMTERENE
  4. ARIPRAZOLE [Concomitant]
     Active Substance: ARIPIPRAZOLE
  5. BUPROPION. [Concomitant]
     Active Substance: BUPROPION
  6. L-THYROXINE [Concomitant]
     Active Substance: LEVOTHYROXINE
  7. XGEVA [Concomitant]
     Active Substance: DENOSUMAB
  8. LAMISIL [Concomitant]
     Active Substance: TERBINAFINE HYDROCHLORIDE
  9. EXEMESTANE. [Concomitant]
     Active Substance: EXEMESTANE
  10. POTASSIUM CL [Concomitant]
     Active Substance: POTASSIUM CHLORIDE

REACTIONS (3)
  - Fatigue [None]
  - Headache [None]
  - Stomatitis [None]

NARRATIVE: CASE EVENT DATE: 20160307
